FAERS Safety Report 8548759-6 (Version None)
Quarter: 2012Q3

REPORT INFORMATION
  Report Type: 
  Country: None (occurrence: None)
  Receive Date: 20120730
  Receipt Date: 20120724
  Transmission Date: 20120928
  Serious: Yes (Other)
  Sender: FDA-Public Use
  Company Number: PHHY2012JP044809

PATIENT
  Age: 69 Year
  Sex: Female

DRUGS (3)
  1. DIOVAN [Suspect]
     Indication: HYPERTENSION
     Dosage: 40 MG, DAILY
     Route: 048
     Dates: end: 20120301
  2. DIOVAN [Suspect]
     Dosage: 40 MG, DAILY
     Route: 048
     Dates: start: 20120301, end: 20120401
  3. LIPITOR [Suspect]
     Dosage: 5 MG, UNK
     Route: 048
     Dates: end: 20120401

REACTIONS (5)
  - ARTHRALGIA [None]
  - MYALGIA [None]
  - RHABDOMYOLYSIS [None]
  - PAIN IN EXTREMITY [None]
  - MUSCULOSKELETAL PAIN [None]
